FAERS Safety Report 4511562-8 (Version None)
Quarter: 2004Q4

REPORT INFORMATION
  Report Type: 
  Country: None (occurrence: None)
  Receive Date: 20041129
  Receipt Date: 20040928
  Transmission Date: 20050328
  Serious: No
  Sender: FDA-Public Use
  Company Number: US-BRISTOL-MYERS SQUIBB COMPANY-12716643

PATIENT
  Age: 62 Year
  Sex: Male
  Weight: 125 kg

DRUGS (5)
  1. ABILIFY [Suspect]
     Indication: BIPOLAR DISORDER
     Route: 048
     Dates: start: 20040920, end: 20040924
  2. GLUCOPHAGE [Concomitant]
  3. SYNTHROID [Concomitant]
  4. ALLOPURINOL [Concomitant]
  5. HYDROCHLOROTHIAZIDE [Concomitant]

REACTIONS (2)
  - DIPLOPIA [None]
  - HEADACHE [None]
